FAERS Safety Report 9953340 (Version 2)
Quarter: 2014Q1

REPORT INFORMATION
  Report Type: Report from Study
  Country: US (occurrence: US)
  Receive Date: 20140304
  Receipt Date: 20140304
  Transmission Date: 20141002
  Serious: No
  Sender: FDA-Public Use
  Company Number: US-ABBVIE-12P-163-0964741-00

PATIENT
  Age: 62 Year
  Sex: Female

DRUGS (3)
  1. HUMIRA [Suspect]
     Indication: CROHN^S DISEASE
     Dates: start: 20120623, end: 20120818
  2. LOSARTAN POTASSIUM [Concomitant]
     Indication: BLOOD PRESSURE
  3. MULTIVITAMIN [Concomitant]
     Indication: PRODUCT USED FOR UNKNOWN INDICATION

REACTIONS (6)
  - Nephrolithiasis [Unknown]
  - Rash pruritic [Recovering/Resolving]
  - Dermatitis contact [Recovering/Resolving]
  - Hypertension [Unknown]
  - Body temperature increased [Unknown]
  - Diarrhoea [Unknown]
